FAERS Safety Report 18616803 (Version 1)
Quarter: 2020Q4

REPORT INFORMATION
  Report Type: Spontaneous
  Country: US (occurrence: US)
  Receive Date: 20201215
  Receipt Date: 20201215
  Transmission Date: 20210114
  Serious: No
  Sender: FDA-Public Use
  Company Number: US-SA-2020SA354485

PATIENT

DRUGS (1)
  1. IRBESARTAN. [Suspect]
     Active Substance: IRBESARTAN
     Dosage: UNK

REACTIONS (1)
  - Drug ineffective [Unknown]
